FAERS Safety Report 22318658 (Version 1)
Quarter: 2023Q2

REPORT INFORMATION
  Report Type: Report from Study
  Country: US (occurrence: US)
  Receive Date: 20230515
  Receipt Date: 20230515
  Transmission Date: 20230721
  Serious: Yes (Hospitalization, Other)
  Sender: FDA-Public Use
  Company Number: US-TAKEDA-2023TUS046740

PATIENT
  Age: 74 Year
  Sex: Male

DRUGS (2)
  1. IXAZOMIB [Suspect]
     Active Substance: IXAZOMIB
     Indication: Plasma cell myeloma
     Dosage: 4 MILLIGRAM
     Route: 048
  2. ELIQUIS [Concomitant]
     Active Substance: APIXABAN
     Dosage: UNK
     Route: 065

REACTIONS (2)
  - Oesophageal haemorrhage [Recovering/Resolving]
  - Oesophagitis [Recovering/Resolving]

NARRATIVE: CASE EVENT DATE: 20230427
